FAERS Safety Report 7298037-0 (Version None)
Quarter: 2011Q1

REPORT INFORMATION
  Report Type: 
  Country: None (occurrence: None)
  Receive Date: 20110217
  Receipt Date: 20110214
  Transmission Date: 20110831
  Serious: No
  Sender: FDA-Public Use
  Company Number: US-PFIZER INC-2011033009

PATIENT
  Sex: Male
  Weight: 73.923 kg

DRUGS (1)
  1. ADVIL CONGESTION RELIEF [Suspect]
     Indication: NASOPHARYNGITIS
     Dosage: UNK, ONE TAB EVERY 6 HOURS
     Route: 048
     Dates: start: 20110208, end: 20110210

REACTIONS (3)
  - RASH GENERALISED [None]
  - PRURITUS GENERALISED [None]
  - SINUSITIS [None]
